FAERS Safety Report 9030765 (Version 2)
Quarter: 2013Q1

REPORT INFORMATION
  Report Type: Spontaneous
  Country: FR (occurrence: FR)
  Receive Date: 20130123
  Receipt Date: 20130225
  Transmission Date: 20140127
  Serious: Yes (Hospitalization, Other)
  Sender: FDA-Public Use
  Company Number: FR-ROCHE-1181429

PATIENT
  Age: 18 Year
  Sex: Female

DRUGS (2)
  1. ROACTEMRA [Suspect]
     Indication: JUVENILE IDIOPATHIC ARTHRITIS
     Route: 041
     Dates: start: 20121108, end: 20121206
  2. ARAVA [Concomitant]
     Route: 065

REACTIONS (2)
  - Neck pain [Recovered/Resolved]
  - Subcutaneous emphysema [Recovered/Resolved]
